FAERS Safety Report 5133640-5 (Version None)
Quarter: 2006Q4

REPORT INFORMATION
  Report Type: 
  Country: None (occurrence: None)
  Receive Date: 20061024
  Receipt Date: 20040123
  Transmission Date: 20070319
  Serious: Yes (Hospitalization, Other)
  Sender: FDA-Public Use
  Company Number: 200410180JP

PATIENT
  Age: 60 Year
  Sex: Female
  Weight: 48 kg

DRUGS (9)
  1. ARAVA [Suspect]
     Indication: RHEUMATOID ARTHRITIS
     Route: 048
     Dates: start: 20040109, end: 20040111
  2. ARAVA [Suspect]
     Route: 048
     Dates: start: 20040112, end: 20040120
  3. MUCOSTA [Concomitant]
     Indication: GASTRITIS
     Route: 048
  4. ERYTHROCIN [Concomitant]
     Indication: BRONCHITIS CHRONIC
     Route: 048
  5. PREDONINE                          /00016201/ [Concomitant]
     Indication: RHEUMATOID ARTHRITIS
     Route: 048
  6. ALFAROL [Concomitant]
     Indication: OSTEOPOROSIS
     Route: 048
  7. ZANTAC [Concomitant]
     Indication: GASTRIC ULCER
     Route: 048
  8. ZOLPIDEM TARTRATE [Concomitant]
     Indication: INSOMNIA
     Route: 048
  9. DEPAS [Concomitant]
     Indication: ANXIETY DISORDER
     Route: 048

REACTIONS (6)
  - ALANINE AMINOTRANSFERASE INCREASED [None]
  - ASPARTATE AMINOTRANSFERASE INCREASED [None]
  - BLEPHARITIS [None]
  - GAMMA-GLUTAMYLTRANSFERASE INCREASED [None]
  - PYREXIA [None]
  - STEVENS-JOHNSON SYNDROME [None]
